FAERS Safety Report 16609938 (Version 1)
Quarter: 2019Q3

REPORT INFORMATION
  Report Type: Spontaneous
  Country: US (occurrence: US)
  Receive Date: 20190722
  Receipt Date: 20190722
  Transmission Date: 20191004
  Serious: No
  Sender: FDA-Public Use
  Company Number: US-TEVA-2019-US-1079747

PATIENT
  Sex: Female
  Weight: 97.52 kg

DRUGS (1)
  1. BUDESONIDE EC 3MG [Suspect]
     Active Substance: BUDESONIDE
     Route: 048

REACTIONS (1)
  - Weight increased [Unknown]
